FAERS Safety Report 4734266-5 (Version None)
Quarter: 2005Q3

REPORT INFORMATION
  Report Type: 
  Country: None (occurrence: None)
  Receive Date: 20050721
  Receipt Date: 20050418
  Transmission Date: 20060218
  Serious: No
  Sender: FDA-Public Use
  Company Number: 2005SP000230

PATIENT
  Age: 80 Year
  Sex: Female
  Weight: 99.7913 kg

DRUGS (6)
  1. LUNESTA [Suspect]
     Indication: INSOMNIA
     Dosage: 1 MG;HS;ORAL
     Route: 048
  2. AMIODARONE [Concomitant]
  3. ATORVASTATIN CALCIUM [Concomitant]
  4. VERAPAMIL [Concomitant]
  5. ATENOLOL [Concomitant]
  6. POTASSIUM CHLORIDE [Concomitant]

REACTIONS (2)
  - DRUG INEFFECTIVE [None]
  - INITIAL INSOMNIA [None]
